FAERS Safety Report 7589749-X (Version None)
Quarter: 2011Q3

REPORT INFORMATION
  Report Type: 
  Country: None (occurrence: None)
  Receive Date: 20110705
  Receipt Date: 20110627
  Transmission Date: 20111222
  Serious: Yes (Hospitalization, Other)
  Sender: FDA-Public Use
  Company Number: GB-PFIZER INC-2009304449

PATIENT
  Age: 71 Year
  Sex: Female

DRUGS (13)
  1. METFORMIN HCL [Suspect]
     Indication: TYPE 2 DIABETES MELLITUS
     Dosage: 1 G, 2X/DAY
     Route: 048
  2. PERINDOPRIL [Suspect]
     Dosage: UNK
     Route: 048
  3. METFORMIN HCL [Suspect]
     Indication: DIABETES MELLITUS
  4. GLICLAZIDE [Suspect]
     Indication: DIABETES MELLITUS
  5. CLOPIDOGREL [Suspect]
     Dosage: UNK
     Route: 065
  6. IRBESARTAN [Suspect]
     Dosage: UNK
     Route: 065
  7. ASPIRIN [Suspect]
     Dosage: UNK
     Route: 065
  8. BENDROFLUMETHIAZIDE [Suspect]
     Dosage: UNK
     Route: 065
  9. DOXAZOSIN MESYLATE [Suspect]
     Dosage: UNK
     Route: 065
  10. GLICLAZIDE [Suspect]
     Indication: TYPE 2 DIABETES MELLITUS
     Dosage: 80 MG, 2X/DAY
     Route: 048
  11. ALLOPURINOL [Suspect]
     Indication: GOUT
     Dosage: UNK
     Route: 048
  12. ATENOLOL [Suspect]
     Route: 048
  13. BENDROFLUAZIDE [Suspect]
     Route: 065

REACTIONS (4)
  - LACTIC ACIDOSIS [None]
  - HYPOGLYCAEMIA [None]
  - DRUG INTERACTION [None]
  - RENAL FAILURE ACUTE [None]
